FAERS Safety Report 9666057 (Version 2)
Quarter: 2013Q4

REPORT INFORMATION
  Report Type: Spontaneous
  Country: US (occurrence: US)
  Receive Date: 20131104
  Receipt Date: 20131226
  Transmission Date: 20140711
  Serious: No
  Sender: FDA-Public Use
  Company Number: US-PFIZER INC-2013310951

PATIENT
  Sex: Female

DRUGS (4)
  1. ADVIL [Suspect]
     Indication: BACK PAIN
     Dosage: 256 MG, ONCE
     Route: 048
     Dates: start: 20131022, end: 20131022
  2. ADVIL [Suspect]
     Indication: PAIN IN EXTREMITY
  3. ADVIL [Suspect]
     Indication: MYALGIA
  4. ADVIL PM [Concomitant]
     Dosage: UNK, AS NEEDED

REACTIONS (1)
  - Drug ineffective [Unknown]
